FAERS Safety Report 24618486 (Version 1)
Quarter: 2024Q4

REPORT INFORMATION
  Report Type: Report from Study
  Country: US (occurrence: US)
  Receive Date: 20241114
  Receipt Date: 20241114
  Transmission Date: 20250114
  Serious: Yes (Other)
  Sender: ALEXION PHARMACEUTICALS
  Company Number: US-ASTRAZENECA-202411USA004100US

PATIENT

DRUGS (14)
  1. OSIMERTINIB [Suspect]
     Active Substance: OSIMERTINIB
     Dosage: 40 MILLIGRAM
  2. OSIMERTINIB [Suspect]
     Active Substance: OSIMERTINIB
     Dosage: 40 MILLIGRAM
  3. OSIMERTINIB [Suspect]
     Active Substance: OSIMERTINIB
     Dosage: 40 MILLIGRAM
  4. OSIMERTINIB [Suspect]
     Active Substance: OSIMERTINIB
     Dosage: 40 MILLIGRAM
  5. ATORVASTATIN [Concomitant]
     Active Substance: ATORVASTATIN
  6. ATORVASTATIN [Concomitant]
     Active Substance: ATORVASTATIN
     Route: 065
  7. ELIQUIS [Concomitant]
     Active Substance: APIXABAN
  8. ELIQUIS [Concomitant]
     Active Substance: APIXABAN
     Route: 065
  9. KEPPRA [Concomitant]
     Active Substance: LEVETIRACETAM
  10. KEPPRA [Concomitant]
     Active Substance: LEVETIRACETAM
     Route: 065
  11. METOPROLOL [Concomitant]
     Active Substance: METOPROLOL
  12. METOPROLOL [Concomitant]
     Active Substance: METOPROLOL
     Route: 065
  13. VITAMIN D [Concomitant]
     Active Substance: VITAMIN D NOS
  14. VITAMIN D [Concomitant]
     Active Substance: VITAMIN D NOS
     Route: 065

REACTIONS (3)
  - Myocardial infarction [Not Recovered/Not Resolved]
  - Constipation [Not Recovered/Not Resolved]
  - Diarrhoea [Not Recovered/Not Resolved]
